FAERS Safety Report 4351048-7 (Version None)
Quarter: 2004Q2

REPORT INFORMATION
  Report Type: 
  Country: None (occurrence: None)
  Receive Date: 20040428
  Receipt Date: 20040415
  Transmission Date: 20050107
  Serious: Yes (Hospitalization)
  Sender: FDA-Public Use
  Company Number: US-JNJFOC-20040403472

PATIENT
  Age: 58 Year
  Sex: Female
  Weight: 63.5036 kg

DRUGS (14)
  1. ULTRAM [Suspect]
     Dosage: 4 DOSE(S), IN 1 DAY, ORAL
     Route: 048
  2. VASOTEC [Concomitant]
  3. ATENOLOL [Concomitant]
  4. LASIX [Concomitant]
  5. ELEVIL (ELEVIT RDI) [Concomitant]
  6. PROZAC [Concomitant]
  7. ZYTREC (CETIRIZINE HYDROCHLORIDE) [Concomitant]
  8. FEROUS SULFATE (FERROUS SULFATE) [Concomitant]
  9. FOSAMAX [Concomitant]
  10. DICYCLOMINE [Concomitant]
  11. BENTYL (DICLYCLOVERINE HYDROCHLORIDE) [Concomitant]
  12. BACLOFIN (BACLOFEN) [Concomitant]
  13. TYLENOL [Concomitant]
  14. PREVACID [Concomitant]

REACTIONS (3)
  - CARDIAC FAILURE CONGESTIVE [None]
  - FULL BLOOD COUNT ABNORMAL [None]
  - ULCER HAEMORRHAGE [None]
